FAERS Safety Report 21989483 (Version 1)
Quarter: 2023Q1

REPORT INFORMATION
  Report Type: Spontaneous
  Country: ES (occurrence: ES)
  Receive Date: 20230214
  Receipt Date: 20230214
  Transmission Date: 20230417
  Serious: Yes (Hospitalization)
  Sender: FDA-Public Use
  Company Number: None

PATIENT
  Age: 8 Month
  Sex: Female

DRUGS (1)
  1. SANDIMMUNE [Suspect]
     Active Substance: CYCLOSPORINE
     Indication: Familial haemophagocytic lymphohistiocytosis
     Dosage: UNK (10 AMPOLLAS DE 5 ML)
     Route: 048
     Dates: start: 20220831, end: 20220907

REACTIONS (1)
  - Thrombotic microangiopathy [Recovered/Resolved]

NARRATIVE: CASE EVENT DATE: 20220910
